FAERS Safety Report 6334373-X (Version None)
Quarter: 2009Q3

REPORT INFORMATION
  Report Type: 
  Country: None (occurrence: None)
  Receive Date: 20090831
  Receipt Date: 20090821
  Transmission Date: 20100115
  Serious: Yes (Hospitalization)
  Sender: FDA-Public Use
  Company Number: US-BIOGENIDEC-2007BI024850

PATIENT
  Age: 54 Year
  Sex: Female
  Weight: 83 kg

DRUGS (4)
  1. AVONEX [Suspect]
     Indication: MULTIPLE SCLEROSIS
     Route: 030
     Dates: start: 19960101
  2. AVONEX [Suspect]
     Route: 030
     Dates: start: 20010415, end: 20070901
  3. AVONEX [Suspect]
     Route: 030
     Dates: start: 20071001
  4. AVONEX [Suspect]
     Route: 030

REACTIONS (11)
  - ARTHRITIS [None]
  - ARTHRITIS FUNGAL [None]
  - ASTHENIA [None]
  - BETA HAEMOLYTIC STREPTOCOCCAL INFECTION [None]
  - CLOSTRIDIAL INFECTION [None]
  - CONTUSION [None]
  - COORDINATION ABNORMAL [None]
  - DEVICE RELATED INFECTION [None]
  - DISLOCATION OF JOINT PROSTHESIS [None]
  - DYSSTASIA [None]
  - SPINAL DISORDER [None]
